FAERS Safety Report 11054755 (Version 1)
Quarter: 2015Q2

REPORT INFORMATION
  Report Type: Spontaneous
  Country: JP (occurrence: JP)
  Receive Date: 20150422
  Receipt Date: 20150422
  Transmission Date: 20150821
  Serious: Yes (Hospitalization)
  Sender: FDA-Public Use
  Company Number: JP-PFIZER INC-2015129495

PATIENT
  Age: 58 Year
  Sex: Female
  Weight: 61 kg

DRUGS (2)
  1. TRIAZOLAM. [Suspect]
     Active Substance: TRIAZOLAM
     Indication: INSOMNIA
     Route: 048
  2. ZOLPIDEM/ZOLPIDEM TARTRATE [Concomitant]
     Indication: INSOMNIA

REACTIONS (5)
  - Tachycardia [Recovered/Resolved]
  - Tremor [Recovered/Resolved]
  - Blood catecholamines increased [Recovered/Resolved]
  - Hypertension [Recovered/Resolved]
  - Drug withdrawal syndrome [Recovered/Resolved]
